FAERS Safety Report 18530691 (Version 1)
Quarter: 2020Q4

REPORT INFORMATION
  Report Type: Spontaneous
  Country: ES (occurrence: ES)
  Receive Date: 20201121
  Receipt Date: 20201121
  Transmission Date: 20210114
  Serious: Yes (Hospitalization)
  Sender: FDA-Public Use
  Company Number: NVSC2020ES305149

PATIENT
  Age: 90 Year
  Sex: Female

DRUGS (1)
  1. AMLODIPINE,HYDROCHLOROTHIAZIDE,VALSARTAN [Suspect]
     Active Substance: AMLODIPINE\HYDROCHLOROTHIAZIDE\VALSARTAN
     Indication: PRODUCT USED FOR UNKNOWN INDICATION
     Dosage: 1 DF, Q24H (1 COMPRIMIDO EN DESAYUNO 10MG/160MG/12,5MG )
     Route: 048
     Dates: start: 20191111, end: 20201028

REACTIONS (3)
  - Hyponatraemia [Recovered/Resolved]
  - Balance disorder [Recovered/Resolved]
  - Dizziness [Recovered/Resolved]

NARRATIVE: CASE EVENT DATE: 202010
